FAERS Safety Report 18844755 (Version 1)
Quarter: 2021Q1

REPORT INFORMATION
  Report Type: Report from Study
  Country: US (occurrence: US)
  Receive Date: 20210203
  Receipt Date: 20210203
  Transmission Date: 20210419
  Serious: No
  Sender: FDA-Public Use
  Company Number: US-EXELIXIS-CABO-19025833

PATIENT
  Sex: Male

DRUGS (10)
  1. CALCIUM [Concomitant]
     Active Substance: CALCIUM
  2. ZINC. [Concomitant]
     Active Substance: ZINC
  3. PEPCID [Concomitant]
     Active Substance: FAMOTIDINE
  4. LEVEMIR [Concomitant]
     Active Substance: INSULIN DETEMIR
  5. VITAMIN C [Concomitant]
     Active Substance: ASCORBIC ACID
  6. HUMALOG [Concomitant]
     Active Substance: INSULIN LISPRO
  7. FLOMAX [Concomitant]
     Active Substance: TAMSULOSIN HYDROCHLORIDE
  8. LYRICA [Concomitant]
     Active Substance: PREGABALIN
  9. PREDNISONE. [Concomitant]
     Active Substance: PREDNISONE
  10. CABOMETYX [Suspect]
     Active Substance: CABOZANTINIB S-MALATE
     Indication: RENAL CELL CARCINOMA
     Dosage: 40 MG, QD
     Route: 048
     Dates: start: 201904

REACTIONS (3)
  - Blood iron decreased [Unknown]
  - Diarrhoea [Unknown]
  - Fatigue [Unknown]
